FAERS Safety Report 5922066-X (Version None)
Quarter: 2008Q4

REPORT INFORMATION
  Report Type: 
  Country: None (occurrence: None)
  Receive Date: 20081017
  Receipt Date: 20081007
  Transmission Date: 20090506
  Serious: Yes (Hospitalization)
  Sender: FDA-Public Use
  Company Number: B0540516A

PATIENT
  Age: 77 Year
  Sex: Female

DRUGS (4)
  1. AUGMENTIN '125' [Suspect]
     Indication: PRODUCTIVE COUGH
     Route: 048
     Dates: start: 20080701, end: 20080701
  2. ROCEPHIN [Suspect]
     Indication: PRODUCTIVE COUGH
     Route: 030
     Dates: start: 20080731, end: 20080814
  3. FOSAMAX [Concomitant]
     Indication: DRUG USE FOR UNKNOWN INDICATION
     Route: 065
  4. CACIT VITAMINE D3 [Concomitant]
     Indication: DRUG USE FOR UNKNOWN INDICATION
     Route: 065

REACTIONS (6)
  - ABDOMINAL PAIN [None]
  - ANOREXIA [None]
  - ASTHENIA [None]
  - COLITIS [None]
  - DIARRHOEA [None]
  - WEIGHT DECREASED [None]
